FAERS Safety Report 18300705 (Version 1)
Quarter: 2020Q3

REPORT INFORMATION
  Report Type: Spontaneous
  Country: US (occurrence: US)
  Receive Date: 20200923
  Receipt Date: 20200923
  Transmission Date: 20201103
  Serious: Yes (Life-Threatening, Hospitalization)
  Sender: FDA-Public Use
  Company Number: None

PATIENT
  Age: 64 Year
  Sex: Male
  Weight: 95 kg

DRUGS (1)
  1. APIXABAN (APIXABAN 5MG TAB) [Suspect]
     Active Substance: APIXABAN
     Indication: ATRIAL FLUTTER
     Dates: start: 20200729, end: 20200826

REACTIONS (5)
  - Fall [None]
  - Gastric haemorrhage [None]
  - Anaemia [None]
  - Head injury [None]
  - Hypotension [None]

NARRATIVE: CASE EVENT DATE: 20200826
